FAERS Safety Report 13007911 (Version 2)
Quarter: 2016Q4

REPORT INFORMATION
  Report Type: Report from Study
  Country: US (occurrence: US)
  Receive Date: 20161208
  Receipt Date: 20161223
  Transmission Date: 20170207
  Serious: Yes (Other)
  Sender: FDA-Public Use
  Company Number: US-ROCHE-1865182

PATIENT
  Age: 26 Year
  Sex: Female
  Weight: 88.53 kg

DRUGS (2)
  1. XOLAIR [Suspect]
     Active Substance: OMALIZUMAB
     Indication: IDIOPATHIC URTICARIA
     Route: 058
     Dates: start: 20161202, end: 20161202
  2. XOLAIR [Suspect]
     Active Substance: OMALIZUMAB
     Route: 030
     Dates: start: 20161202, end: 20161202

REACTIONS (2)
  - Anaphylactic reaction [Recovered/Resolved]
  - Off label use [Unknown]

NARRATIVE: CASE EVENT DATE: 20161202
